FAERS Safety Report 14572941 (Version 1)
Quarter: 2018Q1

REPORT INFORMATION
  Report Type: Report from Study
  Country: DK (occurrence: DK)
  Receive Date: 20180226
  Receipt Date: 20180226
  Transmission Date: 20180509
  Serious: Yes (Other)
  Sender: FDA-Public Use
  Company Number: DK-ROCHE-2074611

PATIENT

DRUGS (2)
  1. IRINOTECAN [Suspect]
     Active Substance: IRINOTECAN
     Indication: GLIOMA
     Route: 065
  2. BEVACIZUMAB. [Suspect]
     Active Substance: BEVACIZUMAB
     Indication: GLIOMA
     Route: 065

REACTIONS (12)
  - Lymphopenia [Unknown]
  - Hypertension [Unknown]
  - Central nervous system haemorrhage [Unknown]
  - Infection [Unknown]
  - Hypokalaemia [Unknown]
  - Nausea [Unknown]
  - Thrombocytopenia [Unknown]
  - Vomiting [Unknown]
  - Deep vein thrombosis [Unknown]
  - Leukoencephalopathy [Unknown]
  - Neutropenia [Unknown]
  - Fatigue [Unknown]
